FAERS Safety Report 7671123-9 (Version None)
Quarter: 2011Q3

REPORT INFORMATION
  Report Type: 
  Country: None (occurrence: None)
  Receive Date: 20110809
  Receipt Date: 20110729
  Transmission Date: 20111222
  Serious: Yes (Death)
  Sender: FDA-Public Use
  Company Number: US-JNJFOC-20110802114

PATIENT
  Sex: Female

DRUGS (8)
  1. DEPAKOTE ER [Suspect]
     Indication: BIPOLAR DISORDER
     Dosage: 500MG, 1-6 HOURS
     Dates: start: 20081202, end: 20110322
  2. ZOLPIDEM TARTRATE [Suspect]
     Indication: PRODUCT USED FOR UNKNOWN INDICATION
     Dosage: 10, QH8YM
     Dates: start: 20091105, end: 20110521
  3. ESCITALOPRAM OXALATE [Suspect]
     Indication: PRODUCT USED FOR UNKNOWN INDICATION
     Dosage: 20, QAM
     Dates: start: 20091020, end: 20110521
  4. SONATA [Suspect]
     Indication: PRODUCT USED FOR UNKNOWN INDICATION
  5. TYLENOL-500 [Suspect]
     Route: 065
  6. LAMOTRIGINE [Suspect]
     Indication: PRODUCT USED FOR UNKNOWN INDICATION
     Dosage: 200, QMS
     Dates: start: 20081202, end: 20110521
  7. TYLENOL-500 [Suspect]
     Indication: PRODUCT USED FOR UNKNOWN INDICATION
     Dosage: 1 BOTTLE
     Route: 065
     Dates: start: 20110521
  8. CARISOPRODOL [Suspect]
     Indication: SLEEP DISORDER
     Dates: start: 20090817, end: 20110521

REACTIONS (1)
  - MULTIPLE DRUG OVERDOSE INTENTIONAL [None]
